FAERS Safety Report 4726468-9 (Version None)
Quarter: 2005Q3

REPORT INFORMATION
  Report Type: 
  Country: None (occurrence: None)
  Receive Date: 20050726
  Receipt Date: 20050708
  Transmission Date: 20060218
  Serious: Yes (Life-Threatening)
  Sender: FDA-Public Use
  Company Number: DSA_26748_2005

PATIENT
  Age: 58 Year
  Sex: Female

DRUGS (5)
  1. ENALAPRIL MALEATE [Suspect]
     Indication: HYPERTENSION
     Dosage: 20 MG Q DAY PO
     Route: 048
     Dates: end: 20050601
  2. ENALAPRIL MALEATE [Suspect]
     Indication: HYPERTENSION
     Dosage: 40 MG Q DAY PO
     Route: 048
     Dates: start: 20050602, end: 20050607
  3. ENALAPRIL MALEATE [Suspect]
     Indication: HYPERTENSION
     Dosage: 20 MG Q DAY, PO
     Route: 048
     Dates: start: 20050608
  4. SELO-ZOK [Concomitant]
  5. LEVAXIN [Concomitant]

REACTIONS (3)
  - BLOOD PRESSURE INCREASED [None]
  - DEPRESSION SUICIDAL [None]
  - DIZZINESS [None]
